FAERS Safety Report 11764139 (Version 1)
Quarter: 2015Q4

REPORT INFORMATION
  Report Type: Spontaneous
  Country: US (occurrence: US)
  Receive Date: 20151120
  Receipt Date: 20151120
  Transmission Date: 20160304
  Serious: No
  Sender: FDA-Public Use
  Company Number: US-ELI_LILLY_AND_COMPANY-US201303004703

PATIENT
  Age: 81 Year
  Sex: Female

DRUGS (4)
  1. FORTEO [Interacting]
     Active Substance: TERIPARATIDE
     Dosage: UNK UNK, QD
     Route: 065
     Dates: start: 20130309
  2. OXYGEN. [Interacting]
     Active Substance: OXYGEN
     Indication: DIAPHRAGMATIC DISORDER
     Dosage: UNK, UNKNOWN
     Route: 065
  3. FORTEO [Suspect]
     Active Substance: TERIPARATIDE
     Indication: OSTEOPOROSIS
     Dosage: UNK UNK, QD
     Route: 065
     Dates: start: 201302
  4. FORTEO [Interacting]
     Active Substance: TERIPARATIDE
     Dosage: UNK UNK, QD
     Route: 065
     Dates: end: 201304

REACTIONS (6)
  - Pain in extremity [Unknown]
  - Drug interaction [Unknown]
  - Back pain [Unknown]
  - Fatigue [Not Recovered/Not Resolved]
  - Injection site haemorrhage [Unknown]
  - Asthenia [Not Recovered/Not Resolved]

NARRATIVE: CASE EVENT DATE: 201302
